FAERS Safety Report 9021585 (Version 1)
Quarter: 2013Q1

REPORT INFORMATION
  Report Type: Spontaneous
  Country: US (occurrence: US)
  Receive Date: 20130119
  Receipt Date: 20130119
  Transmission Date: 20140127
  Serious: No
  Sender: FDA-Public Use
  Company Number: US-009507513-1301USA006993

PATIENT
  Age: 49 Year
  Sex: Female

DRUGS (1)
  1. NASONEX [Suspect]
     Indication: NASAL CONGESTION
     Dosage: UNK
     Dates: start: 20130111, end: 20130112

REACTIONS (2)
  - Nasal congestion [Unknown]
  - Paraesthesia [Unknown]
